FAERS Safety Report 4818962-7 (Version None)
Quarter: 2005Q4

REPORT INFORMATION
  Report Type: 
  Country: None (occurrence: None)
  Receive Date: 20051101
  Receipt Date: 20051020
  Transmission Date: 20060501
  Serious: Yes (Hospitalization)
  Sender: FDA-Public Use
  Company Number: 2005145578

PATIENT
  Age: 74 Year
  Sex: Female

DRUGS (15)
  1. LYRICA [Suspect]
     Indication: PHANTOM PAIN
     Dosage: 300 MG (150 MG, 2 IN 1 D), ORAL
     Route: 048
     Dates: start: 20050208, end: 20050301
  2. BISOPROLOL FUMARATE [Concomitant]
  3. CRESTOR [Concomitant]
  4. DINIT (ISOSORBIDE DINITRATE) [Concomitant]
  5. ASPIRIN [Concomitant]
  6. DUREKAL (POTASSIUM CHLORIDE) [Concomitant]
  7. FUROSEMIDE [Concomitant]
  8. IBUXIN (IBUPROFEN) [Concomitant]
  9. LAXOBERON (SODIUM PICOSULFATE) [Concomitant]
  10. ISOSORBIDE MONONITRATE [Concomitant]
  11. PANACOD (CODEINE PHOSPHATE, PARACETAMOL) [Concomitant]
  12. PLAVIX [Concomitant]
  13. PANTOPRAZOLE SODIUM [Concomitant]
  14. TENOX (TEMAZEPAM) [Concomitant]
  15. TRIPTYL (AMITRIPTYLINE HYDROCHLORIDE) [Concomitant]

REACTIONS (11)
  - ANAEMIA [None]
  - ATRIAL FIBRILLATION [None]
  - DYSPHEMIA [None]
  - FALL [None]
  - GASTRIC POLYPS [None]
  - HAMARTOMA [None]
  - MUSCLE SPASMS [None]
  - PETIT MAL EPILEPSY [None]
  - PNEUMONIA [None]
  - TREMOR [None]
  - VISION BLURRED [None]
